FAERS Safety Report 6538244-5 (Version None)
Quarter: 2010Q1

REPORT INFORMATION
  Report Type: 
  Country: None (occurrence: None)
  Receive Date: 20100112
  Receipt Date: 20100112
  Transmission Date: 20100710
  Serious: Yes (Other)
  Sender: FDA-Public Use
  Company Number: None

PATIENT
  Age: 25 Year
  Sex: Male
  Weight: 61.2356 kg

DRUGS (1)
  1. ACIPHEX [Suspect]
     Indication: DYSPEPSIA
     Dosage: 20MG QDAY PO
     Route: 048
     Dates: start: 20090118, end: 20090124

REACTIONS (2)
  - ANGIOEDEMA [None]
  - MECHANICAL URTICARIA [None]
